FAERS Safety Report 6759435-4 (Version None)
Quarter: 2010Q2

REPORT INFORMATION
  Report Type: 
  Country: None (occurrence: None)
  Receive Date: 20100603
  Receipt Date: 20100519
  Transmission Date: 20101027
  Serious: No
  Sender: FDA-Public Use
  Company Number: 2010050047

PATIENT
  Age: 41 Year
  Sex: Female

DRUGS (2)
  1. ONSOLIS [Suspect]
     Dosage: BU
  2. ACTIQ (FENTANYL) [Concomitant]

REACTIONS (2)
  - DRUG PRESCRIBING ERROR [None]
  - INTERCEPTED MEDICATION ERROR [None]
